FAERS Safety Report 16417402 (Version 1)
Quarter: 2019Q2

REPORT INFORMATION
  Report Type: Report from Study
  Country: CA (occurrence: CA)
  Receive Date: 20190611
  Receipt Date: 20190611
  Transmission Date: 20190711
  Serious: Yes (Hospitalization, Other)
  Sender: FDA-Public Use
  Company Number: CA-JNJFOC-20190302833

PATIENT
  Age: 77 Year
  Sex: Male

DRUGS (1)
  1. STELARA [Suspect]
     Active Substance: USTEKINUMAB
     Indication: CROHN^S DISEASE
     Dosage: STRENGTH = 90 MG
     Route: 058
     Dates: start: 20180713

REACTIONS (6)
  - Post procedural infection [Recovered/Resolved]
  - Diarrhoea [Unknown]
  - Muscular weakness [Unknown]
  - Urinary retention [Not Recovered/Not Resolved]
  - Gait inability [Unknown]
  - Intestinal operation [Unknown]

NARRATIVE: CASE EVENT DATE: 2019
